FAERS Safety Report 6624071-7 (Version None)
Quarter: 2010Q1

REPORT INFORMATION
  Report Type: 
  Country: None (occurrence: None)
  Receive Date: 20100310
  Receipt Date: 20100304
  Transmission Date: 20100710
  Serious: Yes (Hospitalization)
  Sender: FDA-Public Use
  Company Number: GB-ROCHE-685035

PATIENT
  Sex: Male
  Weight: 64 kg

DRUGS (2)
  1. PEGASYS [Suspect]
     Indication: HEPATITIS C POSITIVE
     Dosage: DOSE: 180 NO UNITS PROVIDED
     Route: 058
     Dates: start: 20091123, end: 20091209
  2. COPEGUS [Suspect]
     Indication: HEPATITIS C POSITIVE
     Route: 048
     Dates: start: 20091123, end: 20091209

REACTIONS (6)
  - DISORIENTATION [None]
  - DISTURBANCE IN ATTENTION [None]
  - EPILEPSY [None]
  - INSOMNIA [None]
  - MOOD ALTERED [None]
  - SELF-INJURIOUS IDEATION [None]
